FAERS Safety Report 18450652 (Version 1)
Quarter: 2020Q4

REPORT INFORMATION
  Report Type: Spontaneous
  Country: US (occurrence: US)
  Receive Date: 20201102
  Receipt Date: 20201102
  Transmission Date: 20210114
  Serious: No
  Sender: FDA-Public Use
  Company Number: US-AUROBINDO-AUR-APL-2020-043661

PATIENT
  Age: 50 Year
  Sex: Female

DRUGS (2)
  1. ESCITALOPRAM 20 MG [Suspect]
     Active Substance: ESCITALOPRAM OXALATE
     Indication: PRODUCT USED FOR UNKNOWN INDICATION
     Dosage: 20 MILLIGRAM
     Route: 065
  2. ESCITALOPRAM 20 MG [Suspect]
     Active Substance: ESCITALOPRAM OXALATE
     Dosage: 30 MILLIGRAM (DOSE INCREASED AND ACHIEVED BY 1.5 MG OF TABLET 20 MG OF TABLET)
     Route: 065

REACTIONS (7)
  - Peripheral swelling [Unknown]
  - Condition aggravated [Unknown]
  - Swelling face [Unknown]
  - Product substitution issue [Unknown]
  - Drug ineffective [Unknown]
  - Pruritus [Unknown]
  - Incorrect dose administered [Unknown]
